FAERS Safety Report 9977410 (Version 2)
Quarter: 2014Q1

REPORT INFORMATION
  Report Type: Report from Study
  Country: US (occurrence: US)
  Receive Date: 20140306
  Receipt Date: 20140306
  Transmission Date: 20141002
  Serious: No
  Sender: FDA-Public Use
  Company Number: US-ABBVIE-13P-163-1135662-00

PATIENT
  Age: 63 Year
  Sex: Female
  Weight: 49.94 kg

DRUGS (19)
  1. HUMIRA [Suspect]
     Indication: RHEUMATOID ARTHRITIS
     Dates: start: 20130613
  2. FAMOTIDINE [Concomitant]
     Indication: IRRITABLE BOWEL SYNDROME
  3. KLONOPIN [Concomitant]
     Indication: INSOMNIA
     Dosage: AT BEDTIME
  4. PROLIA [Concomitant]
     Indication: OSTEOPENIA
  5. PROLIA [Concomitant]
     Indication: OSTEOPOROSIS
  6. PATADAY EYE DROPS [Concomitant]
     Indication: GLAUCOMA
  7. TOBRADEX [Concomitant]
     Indication: GLAUCOMA
     Dosage: 0.3 - 0.1 %; 1 AS DIRECTED
  8. FOLIC ACID [Concomitant]
     Indication: VITAMIN SUPPLEMENTATION
  9. NABUMETONE [Concomitant]
     Indication: RHEUMATOID ARTHRITIS
  10. ASPIRIN [Concomitant]
     Indication: MITRAL VALVE PROLAPSE
  11. PROAIR HFA [Concomitant]
     Indication: ASTHMA
  12. METHOTREXATE [Concomitant]
     Indication: RHEUMATOID ARTHRITIS
     Route: 048
     Dates: start: 201109
  13. VITAMINS [Concomitant]
     Indication: VITAMIN SUPPLEMENTATION
  14. ALBUTEROL [Concomitant]
     Indication: PRODUCT USED FOR UNKNOWN INDICATION
  15. LORTAB [Concomitant]
     Indication: PRODUCT USED FOR UNKNOWN INDICATION
     Dosage: 5-500 MG
  16. B-12 [Concomitant]
     Indication: PRODUCT USED FOR UNKNOWN INDICATION
  17. COQ10 [Concomitant]
     Indication: PRODUCT USED FOR UNKNOWN INDICATION
  18. VITAMIN E [Concomitant]
     Indication: PRODUCT USED FOR UNKNOWN INDICATION
  19. RELAFEN [Concomitant]
     Indication: PRODUCT USED FOR UNKNOWN INDICATION

REACTIONS (17)
  - Fatigue [Recovering/Resolving]
  - Paranasal sinus hypersecretion [Not Recovered/Not Resolved]
  - Vision blurred [Recovered/Resolved]
  - Sinusitis [Not Recovered/Not Resolved]
  - Hypoaesthesia [Recovered/Resolved]
  - Pyrexia [Recovered/Resolved]
  - Pain [Not Recovered/Not Resolved]
  - Macrocytosis [Unknown]
  - Liver function test abnormal [Unknown]
  - Alopecia [Unknown]
  - Joint stiffness [Recovering/Resolving]
  - Increased tendency to bruise [Recovering/Resolving]
  - Tinnitus [Recovering/Resolving]
  - Fatigue [Recovering/Resolving]
  - Dyspnoea [Unknown]
  - Cough [Unknown]
  - Endodontic procedure [Unknown]
